FAERS Safety Report 5476098-9 (Version None)
Quarter: 2007Q4

REPORT INFORMATION
  Report Type: 
  Country: None (occurrence: None)
  Receive Date: 20071003
  Receipt Date: 20070921
  Transmission Date: 20080405
  Serious: Yes (Other)
  Sender: FDA-Public Use
  Company Number: DK-ELI_LILLY_AND_COMPANY-DK200706004056

PATIENT
  Age: 29 Year
  Sex: Female

DRUGS (8)
  1. CYMBALTA [Suspect]
     Indication: DEPRESSION
     Dosage: 30 MG, UNK
     Route: 048
     Dates: end: 20070825
  2. CYMBALTA [Suspect]
     Dosage: 30 MG, DAILY (1/D)
     Route: 048
     Dates: start: 20070423, end: 20070825
  3. CYMBALTA [Suspect]
     Dosage: UNK, UNKNOWN
     Route: 065
     Dates: end: 20070825
  4. CYMBALTA [Suspect]
     Dosage: 4 MG, DAILY (1/D)
     Route: 048
     Dates: end: 20070825
  5. CYMBALTA [Suspect]
     Dosage: 9 MG, DAILY (1/D)
     Route: 048
     Dates: end: 20070825
  6. CYMBALTA [Suspect]
     Dosage: 8 MG, DAILY (1/D)
     Route: 048
     Dates: end: 20070825
  7. CYMBALTA [Suspect]
     Dosage: 30 MG, UNKNOWN
     Route: 065
     Dates: end: 20070825
  8. CYMBALTA [Suspect]
     Dosage: 30 MG, QOD
     Route: 065
     Dates: end: 20070825

REACTIONS (6)
  - DEPRESSIVE SYMPTOM [None]
  - DIZZINESS [None]
  - DRUG WITHDRAWAL SYNDROME [None]
  - INFLUENZA LIKE ILLNESS [None]
  - NAUSEA [None]
  - SYNCOPE [None]
